FAERS Safety Report 9344199 (Version 2)
Quarter: 2013Q3

REPORT INFORMATION
  Report Type: Spontaneous
  Country: US (occurrence: None)
  Receive Date: 20130610
  Receipt Date: 20130805
  Transmission Date: 20140515
  Serious: Yes (Other)
  Sender: FDA-Public Use
  Company Number: 1740079

PATIENT
  Age: 60 Year
  Sex: Female
  Weight: 96.18 kg

DRUGS (5)
  1. GENTAMICIN SULFATE [Suspect]
     Indication: ESCHERICHIA INFECTION
     Dosage: 20 DOSES, INJECTION, 2 A DAY.
     Dates: end: 20130313
  2. GENTAMICIN SULFATE [Suspect]
     Indication: CERVICITIS
     Dosage: 20 DOSES, INJECTION, 2 A DAY.
     Dates: end: 20130313
  3. GENTAMICIN SULFATE [Suspect]
     Indication: CYSTITIS ESCHERICHIA
     Dosage: 20 DOSES, INJECTION, 2 A DAY.
     Dates: end: 20130313
  4. MIRAPEX [Concomitant]
  5. ERTAPENEM [Concomitant]

REACTIONS (3)
  - Injection site erythema [None]
  - Injection site pain [None]
  - Drug ineffective [None]
